FAERS Safety Report 7677380-7 (Version None)
Quarter: 2011Q3

REPORT INFORMATION
  Report Type: 
  Country: None (occurrence: None)
  Receive Date: 20110810
  Receipt Date: 20110810
  Transmission Date: 20111222
  Serious: No
  Sender: FDA-Public Use
  Company Number: None

PATIENT
  Sex: Male

DRUGS (1)
  1. NEUPOGEN [Suspect]
     Dosage: 480MCG QIW SQ
     Route: 058
     Dates: start: 20090408, end: 20110808

REACTIONS (2)
  - BACK PAIN [None]
  - DYSPEPSIA [None]
